FAERS Safety Report 23669256 (Version 5)
Quarter: 2024Q2

REPORT INFORMATION
  Report Type: Spontaneous
  Country: US (occurrence: US)
  Receive Date: 20240325
  Receipt Date: 20240429
  Transmission Date: 20240716
  Serious: No
  Sender: FDA-Public Use
  Company Number: US-PFIZER INC-202400069321

PATIENT
  Age: 56 Year
  Sex: Female

DRUGS (1)
  1. SOMATROPIN [Suspect]
     Active Substance: SOMATROPIN
     Dosage: 0.2 MG, DAILY
     Dates: start: 20240312

REACTIONS (8)
  - Muscle spasms [Unknown]
  - Memory impairment [Unknown]
  - Muscular weakness [Unknown]
  - Fatigue [Unknown]
  - Brain fog [Unknown]
  - Vertigo [Unknown]
  - Dizziness [Unknown]
  - Disturbance in attention [Unknown]
